FAERS Safety Report 25955857 (Version 1)
Quarter: 2025Q4

REPORT INFORMATION
  Report Type: Spontaneous
  Country: JP (occurrence: JP)
  Receive Date: 20251024
  Receipt Date: 20251024
  Transmission Date: 20260117
  Serious: Yes (Other)
  Sender: ASTELLAS
  Company Number: JP-ASTELLAS-2025-AER-057613

PATIENT
  Age: 6 Decade
  Sex: Female

DRUGS (16)
  1. VYLOY [Suspect]
     Active Substance: ZOLBETUXIMAB-CLZB
     Indication: Gastric cancer
     Route: 065
     Dates: start: 202410
  2. TS-1 [Concomitant]
     Active Substance: GIMERACIL\OTERACIL POTASSIUM\TEGAFUR
     Indication: Adjuvant therapy
     Dosage: SOX
     Route: 065
     Dates: start: 201907
  3. TS-1 [Concomitant]
     Active Substance: GIMERACIL\OTERACIL POTASSIUM\TEGAFUR
     Route: 065
     Dates: start: 202004
  4. TS-1 [Concomitant]
     Active Substance: GIMERACIL\OTERACIL POTASSIUM\TEGAFUR
     Route: 065
     Dates: start: 202108
  5. TS-1 [Concomitant]
     Active Substance: GIMERACIL\OTERACIL POTASSIUM\TEGAFUR
     Route: 065
     Dates: start: 202407
  6. OXALIPLATIN [Concomitant]
     Active Substance: OXALIPLATIN
     Indication: Gastric cancer
     Dosage: SOX
     Route: 065
     Dates: start: 201907
  7. OXALIPLATIN [Concomitant]
     Active Substance: OXALIPLATIN
     Dosage: FOLFOX
     Route: 065
     Dates: start: 202410
  8. OXALIPLATIN [Concomitant]
     Active Substance: OXALIPLATIN
     Dosage: CAPEOX
     Route: 065
  9. PACLITAXEL [Concomitant]
     Active Substance: PACLITAXEL
     Indication: Adjuvant therapy
     Route: 033
     Dates: start: 201907
  10. PACLITAXEL [Concomitant]
     Active Substance: PACLITAXEL
     Route: 033
     Dates: start: 202004
  11. PACLITAXEL [Concomitant]
     Active Substance: PACLITAXEL
     Route: 033
     Dates: start: 202108
  12. PACLITAXEL [Concomitant]
     Active Substance: PACLITAXEL
     Route: 033
     Dates: start: 202407
  13. FLUOROURACIL [Concomitant]
     Active Substance: FLUOROURACIL
     Indication: Gastric cancer
     Route: 065
     Dates: start: 202410
  14. LEVOLEUCOVORIN CALCIUM [Concomitant]
     Active Substance: LEVOLEUCOVORIN CALCIUM
     Indication: Gastric cancer
     Route: 065
     Dates: start: 202410
  15. CALONAL [Concomitant]
     Active Substance: ACETAMINOPHEN
     Indication: Abdominal pain upper
     Route: 065
     Dates: start: 2024
  16. CAPECITABINE [Concomitant]
     Active Substance: CAPECITABINE
     Indication: Gastric cancer
     Route: 065

REACTIONS (2)
  - Metastases to peritoneum [Unknown]
  - Gastric mucosal lesion [Unknown]

NARRATIVE: CASE EVENT DATE: 20240101
